FAERS Safety Report 7125829-0 (Version None)
Quarter: 2010Q4

REPORT INFORMATION
  Report Type: 
  Country: None (occurrence: None)
  Receive Date: 20101129
  Receipt Date: 20101115
  Transmission Date: 20110411
  Serious: Yes (Disabling)
  Sender: FDA-Public Use
  Company Number: BE-ASTRAZENECA-2010SE54719

PATIENT

DRUGS (1)
  1. MARCAINE [Suspect]
     Indication: ANAESTHESIA
     Route: 037

REACTIONS (1)
  - DEAFNESS [None]
